FAERS Safety Report 10874583 (Version 1)
Quarter: 2015Q1

REPORT INFORMATION
  Report Type: Spontaneous
  Country: US (occurrence: US)
  Receive Date: 20150227
  Receipt Date: 20150227
  Transmission Date: 20150721
  Serious: No
  Sender: FDA-Public Use
  Company Number: US-GLAXOSMITHKLINE-US2014GSK035278

PATIENT
  Age: 55 Year
  Sex: Male

DRUGS (1)
  1. VENTOLIN HFA [Suspect]
     Active Substance: ALBUTEROL SULFATE
     Indication: MULTIPLE ALLERGIES
     Route: 055

REACTIONS (10)
  - Heart rate irregular [Recovering/Resolving]
  - Vision blurred [Recovering/Resolving]
  - Inappropriate schedule of drug administration [Unknown]
  - Nasal congestion [Recovering/Resolving]
  - Tremor [Recovering/Resolving]
  - Hypertension [Recovering/Resolving]
  - Agitation [Recovering/Resolving]
  - Oropharyngeal pain [Recovering/Resolving]
  - Drug effect decreased [Unknown]
  - Paraesthesia [Recovering/Resolving]
